FAERS Safety Report 5758887-6 (Version None)
Quarter: 2008Q2

REPORT INFORMATION
  Report Type: 
  Country: None (occurrence: None)
  Receive Date: 20080604
  Receipt Date: 20080527
  Transmission Date: 20081010
  Serious: Yes (Other)
  Sender: FDA-Public Use
  Company Number: PHHY2008BR08902

PATIENT
  Sex: Female
  Weight: 60 kg

DRUGS (2)
  1. ZOLEDRONIC ACID [Suspect]
     Indication: OSTEOPOROSIS
     Dosage: ONCE A YEAR
     Route: 042
     Dates: start: 20080515
  2. LEXOTAN [Concomitant]
     Indication: ANXIETY
     Dosage: 1 TABLET DAILY

REACTIONS (9)
  - ABDOMINAL PAIN UPPER [None]
  - BACK PAIN [None]
  - EYE PAIN [None]
  - HEADACHE [None]
  - INFLAMMATION [None]
  - INTRAOCULAR PRESSURE INCREASED [None]
  - NAUSEA [None]
  - OCULAR HYPERAEMIA [None]
  - PAIN [None]
